FAERS Safety Report 6708622-X (Version None)
Quarter: 2010Q2

REPORT INFORMATION
  Report Type: 
  Country: None (occurrence: None)
  Receive Date: 20100503
  Receipt Date: 20100422
  Transmission Date: 20101027
  Serious: No
  Sender: FDA-Public Use
  Company Number: AT-ELI_LILLY_AND_COMPANY-AT201004006481

PATIENT
  Age: 40 Year
  Sex: Female

DRUGS (3)
  1. ZYPREXA [Suspect]
     Indication: DEPRESSIVE DELUSION
     Dosage: 10 MG, DAILY (1/D)
     Dates: start: 20100420, end: 20100422
  2. FLUOXETINE [Concomitant]
     Indication: DEPRESSION
     Dosage: 20 MG, DAILY (1/D)
     Dates: start: 20100420, end: 20100422
  3. LORAZEPAM [Concomitant]
     Dosage: 2.5 MG, DAILY (1/D)

REACTIONS (2)
  - OFF LABEL USE [None]
  - PANCYTOPENIA [None]
